FAERS Safety Report 19080361 (Version 1)
Quarter: 2021Q2

REPORT INFORMATION
  Report Type: Spontaneous
  Country: GB (occurrence: GB)
  Receive Date: 20210401
  Receipt Date: 20210401
  Transmission Date: 20210717
  Serious: Yes (Other)
  Sender: FDA-Public Use
  Company Number: GB-DRREDDYS-USA/UKI/21/0133762

PATIENT
  Age: 29 Year
  Sex: Female

DRUGS (4)
  1. TERBINAFINE. [Suspect]
     Active Substance: TERBINAFINE
     Indication: BRONCHITIS
  2. CASPOFUNGIN [Suspect]
     Active Substance: CASPOFUNGIN
     Indication: BRONCHITIS
  3. AMPHOTERICIN B. [Suspect]
     Active Substance: AMPHOTERICIN B
     Indication: BRONCHITIS
  4. POSACONAZOLE [Suspect]
     Active Substance: POSACONAZOLE
     Indication: BRONCHITIS

REACTIONS (1)
  - Drug ineffective [Unknown]
